FAERS Safety Report 26101637 (Version 1)
Quarter: 2025Q4

REPORT INFORMATION
  Report Type: Report from Study
  Country: GB (occurrence: GB)
  Receive Date: 20251128
  Receipt Date: 20251128
  Transmission Date: 20260117
  Serious: Yes (Other)
  Sender: NOVARTIS
  Company Number: GB-002147023-NVSC2025GB039887

PATIENT
  Sex: Female

DRUGS (2)
  1. MAYZENT [Suspect]
     Active Substance: SIPONIMOD
     Indication: Secondary progressive multiple sclerosis
     Dosage: 2 MG, QD
     Route: 048
     Dates: start: 20241105
  2. MAYZENT [Suspect]
     Active Substance: SIPONIMOD
     Dosage: UNK, QD
     Route: 065

REACTIONS (5)
  - Breast cancer [Unknown]
  - Blood bilirubin increased [Unknown]
  - Rash [Unknown]
  - Balance disorder [Unknown]
  - Migraine [Unknown]

NARRATIVE: CASE EVENT DATE: 20241105
